FAERS Safety Report 7417756-6 (Version None)
Quarter: 2011Q2

REPORT INFORMATION
  Report Type: 
  Country: None (occurrence: None)
  Receive Date: 20110415
  Receipt Date: 20110411
  Transmission Date: 20111010
  Serious: Yes (Life-Threatening, Hospitalization, Other)
  Sender: FDA-Public Use
  Company Number: PHHY2009IE29955

PATIENT
  Sex: Male
  Weight: 95 kg

DRUGS (14)
  1. LAMOTRIGINE [Concomitant]
     Indication: SCHIZOAFFECTIVE DISORDER
  2. LITHIUM [Concomitant]
     Indication: AFFECTIVE DISORDER
     Dosage: 600 MG-2 FOR 2 YEARS
     Route: 048
     Dates: start: 20080101, end: 20090716
  3. RAMIPRIL [Concomitant]
  4. ESCITALOPRAM [Concomitant]
     Indication: SCHIZOAFFECTIVE DISORDER
     Dosage: 5 MG, UNK
     Route: 048
     Dates: start: 20090626, end: 20090806
  5. OLANZAPINE [Concomitant]
  6. PROPRANOLOL [Concomitant]
  7. FRUSEMIDE [Concomitant]
  8. LAMICTAL [Concomitant]
     Indication: SCHIZOAFFECTIVE DISORDER
  9. FLUPENTIXOL [Concomitant]
     Indication: SCHIZOAFFECTIVE DISORDER
     Dosage: 300 MG, BIW
     Route: 030
     Dates: start: 20020101, end: 20090601
  10. QUETIAPINE [Concomitant]
  11. CLOZARIL [Suspect]
     Dosage: 200 MG, QD
  12. LITHIUM [Concomitant]
     Indication: SCHIZOAFFECTIVE DISORDER
  13. LAMOTRIGINE [Concomitant]
     Indication: AFFECTIVE DISORDER
     Dosage: 400 MG
     Route: 048
     Dates: start: 20030101, end: 20090716
  14. CLOZARIL [Suspect]
     Indication: SCHIZOPHRENIA
     Dosage: 175 MG DAILY
     Route: 048
     Dates: start: 20090702, end: 20090716

REACTIONS (40)
  - TACHYCARDIA [None]
  - HYPERHIDROSIS [None]
  - TROPONIN INCREASED [None]
  - PERICARDIAL EFFUSION [None]
  - CARDIOMEGALY [None]
  - NEUROLEPTIC MALIGNANT SYNDROME [None]
  - EJECTION FRACTION DECREASED [None]
  - DYSPNOEA [None]
  - COUGH [None]
  - HYPOXIA [None]
  - MENTAL IMPAIRMENT [None]
  - MYOCARDITIS [None]
  - NEUTROPHIL COUNT INCREASED [None]
  - C-REACTIVE PROTEIN INCREASED [None]
  - UPPER RESPIRATORY TRACT INFECTION [None]
  - ELECTROCARDIOGRAM ST SEGMENT ELEVATION [None]
  - PYREXIA [None]
  - MALAISE [None]
  - HYPOCAPNIA [None]
  - WHITE BLOOD CELL COUNT INCREASED [None]
  - CREPITATIONS [None]
  - CARDIOMYOPATHY [None]
  - BLOOD CREATINE PHOSPHOKINASE INCREASED [None]
  - HYPOTENSION [None]
  - SYSTOLIC HYPERTENSION [None]
  - PALPITATIONS [None]
  - SEPSIS [None]
  - PULMONARY CONGESTION [None]
  - OXYGEN SATURATION DECREASED [None]
  - CHEST PAIN [None]
  - TACHYPNOEA [None]
  - PULMONARY OEDEMA [None]
  - RASH ERYTHEMATOUS [None]
  - HEADACHE [None]
  - HEART RATE INCREASED [None]
  - BODY TEMPERATURE INCREASED [None]
  - NAUSEA [None]
  - SINUS TACHYCARDIA [None]
  - SALIVARY HYPERSECRETION [None]
  - PULMONARY EMBOLISM [None]
